FAERS Safety Report 5145500-4 (Version None)
Quarter: 2006Q4

REPORT INFORMATION
  Report Type: 
  Country: None (occurrence: None)
  Receive Date: 20061101
  Receipt Date: 20061016
  Transmission Date: 20070319
  Serious: Yes (Other)
  Sender: FDA-Public Use
  Company Number: US-2006-003843

PATIENT
  Age: 43 Year
  Sex: Female
  Weight: 52.2 kg

DRUGS (23)
  1. BETASERON [Suspect]
     Indication: RELAPSING-REMITTING MULTIPLE SCLEROSIS
     Dosage: 8 MIU, EVERY 2D, SUBCUTANEOUS
     Route: 058
     Dates: start: 19900101, end: 20060201
  2. BETASERON [Suspect]
     Indication: RELAPSING-REMITTING MULTIPLE SCLEROSIS
     Dosage: 8 MIU, EVERY 2D, SUBCUTANEOUS
     Route: 058
     Dates: start: 20060201
  3. ELAVIL [Concomitant]
  4. MODAFINIL [Concomitant]
  5. MOTRIN [Concomitant]
  6. PRILOSEC [Concomitant]
  7. MVI (VITAMINS NOS) [Concomitant]
  8. DICYCLOMINE [Concomitant]
  9. ZYRTEC [Concomitant]
  10. FLONASE [Concomitant]
  11. AMITRIPTYLINE HYDROCHLORIDE [Concomitant]
  12. CALCIUM CITRATE W/VITAMIN D NOS (VITAMIN D NOS, CALCIUM CITRATE) [Concomitant]
  13. CLINDAMYCIN PHOSPHATE (CLINDAMYCIN PHOSPHATE) SOLUTION [Concomitant]
  14. BENZOYL PEROXIDE GEL [Concomitant]
  15. IBUPROFEN [Concomitant]
  16. DOCUSATE SODIUM (DOCUSATE SODIUM) CAPSULE [Concomitant]
  17. TRETINOIN (TRETINOIN) CREAM [Concomitant]
  18. CETIRIZINE HCL [Concomitant]
  19. CETAPHIL [Concomitant]
  20. FLUTICASONE PROPIONATE [Concomitant]
  21. DICYCLOMINE HYDROCHLORIDE [Concomitant]
  22. OMEPRAZOLE [Concomitant]
  23. AMMONIUM LACTATE [Concomitant]

REACTIONS (16)
  - ARTHRALGIA [None]
  - DEMYELINATION [None]
  - HYPOAESTHESIA [None]
  - INCORRECT ROUTE OF DRUG ADMINISTRATION [None]
  - INJECTION SITE ATROPHY [None]
  - INJECTION SITE NERVE DAMAGE [None]
  - INSOMNIA [None]
  - INTERVERTEBRAL DISC DISORDER [None]
  - MOVEMENT DISORDER [None]
  - MUSCULAR WEAKNESS [None]
  - NEUROPATHY PERIPHERAL [None]
  - PAIN IN EXTREMITY [None]
  - RADIAL NERVE INJURY [None]
  - RADIAL NERVE PALSY [None]
  - SCOLIOSIS [None]
  - SPINAL OSTEOARTHRITIS [None]
